FAERS Safety Report 4722100-9 (Version None)
Quarter: 2005Q3

REPORT INFORMATION
  Report Type: 
  Country: None (occurrence: None)
  Receive Date: 20050720
  Receipt Date: 20050707
  Transmission Date: 20060218
  Serious: Yes (Death, Hospitalization)
  Sender: FDA-Public Use
  Company Number: 191277

PATIENT
  Age: 48 Year
  Sex: Female
  Weight: 77.2929 kg

DRUGS (2)
  1. AVONEX [Suspect]
     Indication: MULTIPLE SCLEROSIS
     Dosage: 30 UG QW IM
     Route: 030
     Dates: start: 20010101, end: 20040119
  2. ELAVIL [Concomitant]

REACTIONS (24)
  - ACTIVATED PARTIAL THROMBOPLASTIN TIME PROLONGED [None]
  - BRAIN MASS [None]
  - CEREBRAL ARTERY EMBOLISM [None]
  - CEREBRAL ISCHAEMIA [None]
  - CONDITION AGGRAVATED [None]
  - DEHYDRATION [None]
  - DISSEMINATED INTRAVASCULAR COAGULATION [None]
  - GENERALISED OEDEMA [None]
  - HAEMOLYTIC ANAEMIA [None]
  - HYPERNATRAEMIA [None]
  - INTERNATIONAL NORMALISED RATIO INCREASED [None]
  - LIVEDO RETICULARIS [None]
  - LOSS OF CONSCIOUSNESS [None]
  - MULTIPLE SCLEROSIS [None]
  - PNEUMONIA [None]
  - PYREXIA [None]
  - RENAL FAILURE ACUTE [None]
  - RESPIRATORY FAILURE [None]
  - SENSATION OF HEAVINESS [None]
  - SEPTIC SHOCK [None]
  - SERUM SEROTONIN DECREASED [None]
  - THROMBOTIC THROMBOCYTOPENIC PURPURA [None]
  - VAGINAL HAEMORRHAGE [None]
  - VENTRICULAR FIBRILLATION [None]
